FAERS Safety Report 10194065 (Version 1)
Quarter: 2014Q2

REPORT INFORMATION
  Report Type: Spontaneous
  Country: US (occurrence: US)
  Receive Date: 20140524
  Receipt Date: 20140524
  Transmission Date: 20141212
  Serious: No
  Sender: FDA-Public Use
  Company Number: US-SANOFI-AVENTIS-2013SA065425

PATIENT
  Sex: Female

DRUGS (2)
  1. SOLOSTAR [Suspect]
     Route: 065
  2. LANTUS SOLOSTAR [Suspect]
     Route: 051

REACTIONS (2)
  - Skin discolouration [Unknown]
  - Injection site haemorrhage [Unknown]
